FAERS Safety Report 23492277 (Version 1)
Quarter: 2024Q1

REPORT INFORMATION
  Report Type: Report from Study
  Country: US (occurrence: US)
  Receive Date: 20240207
  Receipt Date: 20240207
  Transmission Date: 20240409
  Serious: No
  Sender: FDA-Public Use
  Company Number: US-ORG100014127-2023000949

PATIENT
  Age: 80 Year
  Sex: Female

DRUGS (22)
  1. LYSODREN [Suspect]
     Active Substance: MITOTANE
     Indication: Adrenal gland cancer
     Dosage: 2000MG BY MOUTH 3 TIMES DAILY
     Route: 048
     Dates: start: 20230408
  2. LYSODREN [Suspect]
     Active Substance: MITOTANE
     Indication: Adrenal gland cancer
     Dosage: 2500MG BY MOUTH 3 TIMES DAILY
     Route: 048
  3. LYSODREN [Suspect]
     Active Substance: MITOTANE
     Indication: Adrenal gland cancer
     Dosage: 3 TABLETS IN THE MORNING, 3 TABLETS AT LUNCH, 4 TABLETS IN THE VENING
     Route: 048
  4. ACETAMIN TAB 500MG [Concomitant]
     Indication: Product used for unknown indication
  5. AMLODIPINE [Concomitant]
     Active Substance: AMLODIPINE BESYLATE
     Indication: Product used for unknown indication
  6. ASPIRIN LOW CHW 81MG [Concomitant]
     Indication: Product used for unknown indication
  7. CARVEDILOL [Concomitant]
     Active Substance: CARVEDILOL
     Indication: Product used for unknown indication
  8. ELIQUIS [Concomitant]
     Active Substance: APIXABAN
     Indication: Product used for unknown indication
  9. EZETIMIBE [Concomitant]
     Active Substance: EZETIMIBE
     Indication: Product used for unknown indication
  10. FEXOFENADINE TAB 180MG [Concomitant]
     Indication: Product used for unknown indication
  11. HYDROCHLOROTHIAZIDE [Concomitant]
     Active Substance: HYDROCHLOROTHIAZIDE
     Indication: Product used for unknown indication
  12. ACETAMINOPHEN\HYDROCODONE [Concomitant]
     Active Substance: ACETAMINOPHEN\HYDROCODONE
     Indication: Product used for unknown indication
  13. HYDROCORT TAB 10MG [Concomitant]
     Indication: Product used for unknown indication
  14. PIOGLITAZONE TAB 15MG [Concomitant]
     Indication: Product used for unknown indication
  15. MINERALS\VITAMINS [Concomitant]
     Active Substance: MINERALS\VITAMINS
     Indication: Product used for unknown indication
  16. ROSUVASTATIN [Concomitant]
     Active Substance: ROSUVASTATIN
     Indication: Product used for unknown indication
  17. SYNTHROID TAB 125MCG [Concomitant]
     Indication: Product used for unknown indication
  18. VALSARTAN [Concomitant]
     Active Substance: VALSARTAN
     Indication: Product used for unknown indication
  19. ICAPS AREDS TAB FORMULA [Concomitant]
     Indication: Product used for unknown indication
  20. MIRALAX POW 3350 NF [Concomitant]
     Indication: Product used for unknown indication
  21. VITAMIN B-12 TAB 250MCG [Concomitant]
     Indication: Product used for unknown indication
  22. VITAMIN D TAB 400UNIT [Concomitant]
     Indication: Product used for unknown indication

REACTIONS (3)
  - Adverse event [Unknown]
  - Fatigue [Unknown]
  - Wrong technique in product usage process [Unknown]

NARRATIVE: CASE EVENT DATE: 20230408
